FAERS Safety Report 7335880-3 (Version None)
Quarter: 2011Q1

REPORT INFORMATION
  Report Type: 
  Country: None (occurrence: None)
  Receive Date: 20110307
  Receipt Date: 20110225
  Transmission Date: 20110831
  Serious: Yes (Other)
  Sender: FDA-Public Use
  Company Number: US-ASTRAZENECA-2011SE11036

PATIENT
  Age: 45 Year
  Sex: Male

DRUGS (1)
  1. CRESTOR [Suspect]
     Route: 048

REACTIONS (4)
  - MEMORY IMPAIRMENT [None]
  - NEOPLASM MALIGNANT [None]
  - FATIGUE [None]
  - DISTURBANCE IN ATTENTION [None]
